FAERS Safety Report 15381693 (Version 3)
Quarter: 2019Q1

REPORT INFORMATION
  Report Type: Spontaneous
  Country: US (occurrence: US)
  Receive Date: 20180913
  Receipt Date: 20190104
  Transmission Date: 20190417
  Serious: Yes (Death, Other)
  Sender: FDA-Public Use
  Company Number: US-ASTELLAS-2018US005475

PATIENT
  Age: 79 Year
  Sex: Male

DRUGS (1)
  1. XTANDI [Suspect]
     Active Substance: ENZALUTAMIDE
     Indication: PROSTATE CANCER
     Route: 048
     Dates: start: 20170803, end: 201811

REACTIONS (7)
  - Headache [Not Recovered/Not Resolved]
  - Pulmonary haemorrhage [Unknown]
  - Insomnia [Unknown]
  - Back pain [Not Recovered/Not Resolved]
  - Death [Fatal]
  - Gait inability [Unknown]
  - Hyperhidrosis [Unknown]

NARRATIVE: CASE EVENT DATE: 20170803
